FAERS Safety Report 8307195-8 (Version None)
Quarter: 2012Q2

REPORT INFORMATION
  Report Type: 
  Country: None (occurrence: None)
  Receive Date: 20120424
  Receipt Date: 20120417
  Transmission Date: 20120825
  Serious: Yes (Other)
  Sender: FDA-Public Use
  Company Number: US-UCBSA-055609

PATIENT
  Age: 38 Year
  Sex: Male

DRUGS (2)
  1. KEPPRA XR [Suspect]
  2. LYRICA [Concomitant]

REACTIONS (2)
  - OSTEOPOROSIS [None]
  - VISUAL IMPAIRMENT [None]
